FAERS Safety Report 9709921 (Version 3)
Quarter: 2014Q1

REPORT INFORMATION
  Report Type: Spontaneous
  Country: US (occurrence: US)
  Receive Date: 20131126
  Receipt Date: 20140110
  Transmission Date: 20141002
  Serious: Yes (Other)
  Sender: FDA-Public Use
  Company Number: US-PFIZER INC-2013334823

PATIENT
  Age: 76 Year
  Sex: Male

DRUGS (8)
  1. SUTENT [Suspect]
     Indication: PANCREATIC NEUROENDOCRINE TUMOUR
     Dosage: 39.5 MG, DAILY
     Route: 048
     Dates: start: 20130926, end: 20140107
  2. HCTZ [Concomitant]
     Dosage: UNK
  3. SIMVASTATIN [Concomitant]
     Dosage: UNK
  4. LISINOPRIL [Concomitant]
     Dosage: UNK
  5. ZOLPIDEM [Concomitant]
     Dosage: UNK
  6. ALFUZOSIN [Concomitant]
     Dosage: UNK
  7. AVODART [Concomitant]
     Dosage: UNK
  8. TRIMETHOPRIM [Concomitant]
     Dosage: UNK

REACTIONS (5)
  - Dry skin [Unknown]
  - Pain in extremity [Unknown]
  - Gait disturbance [Unknown]
  - Cough [Unknown]
  - Oral pain [Unknown]
